FAERS Safety Report 4683503-4 (Version None)
Quarter: 2005Q2

REPORT INFORMATION
  Report Type: 
  Country: None (occurrence: None)
  Receive Date: 20050606
  Receipt Date: 20050606
  Transmission Date: 20051028
  Serious: Yes (Other)
  Sender: FDA-Public Use
  Company Number: None

PATIENT
  Age: 77 Year
  Sex: Female
  Weight: 58 kg

DRUGS (5)
  1. VITAMIN K TAB [Suspect]
     Indication: COAGULOPATHY
     Dosage: 10 MG    IVPB
     Route: 042
     Dates: start: 20050520, end: 20050520
  2. POTASSIUM CHLORIDE [Concomitant]
  3. FUROSEMIDE [Concomitant]
  4. NORMAL SALINE [Concomitant]
  5. ACETAMINOPHEN [Concomitant]

REACTIONS (3)
  - CYANOSIS [None]
  - EYE ROLLING [None]
  - INFUSION RELATED REACTION [None]
